FAERS Safety Report 21758404 (Version 1)
Quarter: 2022Q4

REPORT INFORMATION
  Report Type: Spontaneous
  Country: US (occurrence: None)
  Receive Date: 20221221
  Receipt Date: 20221221
  Transmission Date: 20230113
  Serious: No
  Sender: FDA-Public Use
  Company Number: US-ROCHE-2977424

PATIENT
  Age: 57 Year
  Sex: Male
  Weight: 95.2 kg

DRUGS (1)
  1. GAZYVA [Suspect]
     Active Substance: OBINUTUZUMAB
     Indication: Focal segmental glomerulosclerosis
     Route: 042
     Dates: start: 20211201

REACTIONS (2)
  - Drug titration error [Unknown]
  - No adverse event [Unknown]

NARRATIVE: CASE EVENT DATE: 20211201
